FAERS Safety Report 7585963-8 (Version None)
Quarter: 2011Q3

REPORT INFORMATION
  Report Type: 
  Country: None (occurrence: None)
  Receive Date: 20110701
  Receipt Date: 20110623
  Transmission Date: 20111222
  Serious: Yes (Other)
  Sender: FDA-Public Use
  Company Number: US-ASTELLAS-2011US000260

PATIENT

DRUGS (2)
  1. PROGRAF [Suspect]
     Dosage: 5 MG, UID/QD
     Route: 048
     Dates: start: 20060808
  2. PROGRAF [Suspect]
     Indication: RENAL TRANSPLANT
     Dosage: 3 MG, BID
     Route: 048

REACTIONS (2)
  - CEREBROVASCULAR ACCIDENT [None]
  - HEART VALVE INCOMPETENCE [None]
